FAERS Safety Report 4777875-X (Version None)
Quarter: 2005Q3

REPORT INFORMATION
  Report Type: 
  Country: None (occurrence: None)
  Receive Date: 20050926
  Receipt Date: 20050916
  Transmission Date: 20060218
  Serious: Yes (Hospitalization)
  Sender: FDA-Public Use
  Company Number: US-BOEHRINGER INGELHEIM PHARMACEUTICALS, INC.-2005-BP-16454BP

PATIENT
  Sex: Female

DRUGS (8)
  1. CATAPRES-TTS-1 [Suspect]
     Indication: HYPERTENSION
     Route: 061
     Dates: start: 20050501
  2. BENICAR [Concomitant]
  3. NORVASC [Concomitant]
  4. HYDROCHLOROTHIAZIDE [Concomitant]
  5. DETROL [Concomitant]
  6. PRILOSEC [Concomitant]
  7. AVANDIA [Concomitant]
  8. WARFARIN SODIUM [Concomitant]

REACTIONS (5)
  - ANORECTAL DISORDER [None]
  - APPLICATION SITE DERMATITIS [None]
  - APPLICATION SITE ERYTHEMA [None]
  - APPLICATION SITE PRURITUS [None]
  - APPLICATION SITE REACTION [None]
